FAERS Safety Report 5779682-8 (Version None)
Quarter: 2008Q2

REPORT INFORMATION
  Report Type: 
  Country: None (occurrence: None)
  Receive Date: 20080619
  Receipt Date: 20080613
  Transmission Date: 20081010
  Serious: Yes (Hospitalization)
  Sender: FDA-Public Use
  Company Number: US-MERCK-0804USA03787

PATIENT
  Age: 40 Year
  Sex: Female

DRUGS (7)
  1. ISENTRESS [Suspect]
     Indication: HIV INFECTION
     Route: 048
     Dates: start: 20080406, end: 20080413
  2. ISENTRESS [Suspect]
     Route: 048
     Dates: start: 20080512
  3. PRINIVIL [Suspect]
     Indication: HYPERTENSION
     Route: 065
     Dates: end: 20080413
  4. KALETRA [Concomitant]
     Indication: HIV INFECTION
     Route: 065
     Dates: start: 20080406, end: 20080413
  5. KALETRA [Concomitant]
     Route: 065
     Dates: start: 20080512
  6. SELZENTRY [Concomitant]
     Indication: HIV INFECTION
     Route: 065
     Dates: start: 20080406, end: 20080413
  7. SELZENTRY [Concomitant]
     Route: 065
     Dates: start: 20080512

REACTIONS (5)
  - ANGIOEDEMA [None]
  - DYSPHAGIA [None]
  - DYSPNOEA [None]
  - PARAESTHESIA [None]
  - SWOLLEN TONGUE [None]
